FAERS Safety Report 8177988-9 (Version None)
Quarter: 2012Q1

REPORT INFORMATION
  Report Type: 
  Country: None (occurrence: None)
  Receive Date: 20120301
  Receipt Date: 20120221
  Transmission Date: 20120608
  Serious: Yes (Other)
  Sender: FDA-Public Use
  Company Number: US-ABBOTT-12P-163-0906819-00

PATIENT

DRUGS (1)
  1. HUMIRA [Suspect]
     Indication: PRODUCT USED FOR UNKNOWN INDICATION
     Dates: start: 20100601, end: 20110401

REACTIONS (6)
  - NERVOUS SYSTEM DISORDER [None]
  - INJECTION SITE PAIN [None]
  - UNEVALUABLE EVENT [None]
  - NERVE INJURY [None]
  - PAIN [None]
  - MULTIPLE SCLEROSIS [None]
